FAERS Safety Report 7999417-8 (Version None)
Quarter: 2011Q4

REPORT INFORMATION
  Report Type: 
  Country: None (occurrence: None)
  Receive Date: 20111221
  Receipt Date: 20111212
  Transmission Date: 20120403
  Serious: Yes (Hospitalization)
  Sender: FDA-Public Use
  Company Number: US-ELI_LILLY_AND_COMPANY-US200801006032

PATIENT
  Sex: Female

DRUGS (12)
  1. HUMULIN R [Suspect]
     Dosage: UNK UNK, PRN
  2. HUMULIN N [Suspect]
     Dosage: 27 U, UNK
     Dates: start: 20080101
  3. PERCOCET [Concomitant]
     Dates: start: 20000101
  4. NPH ILETIN I (BEEF-PORK) [Suspect]
  5. CORTISONE ACETATE [Concomitant]
  6. HUMULIN N [Suspect]
     Indication: TYPE 1 DIABETES MELLITUS
     Dosage: 25 U, EACH MORNING
  7. HUMULIN R [Suspect]
     Indication: TYPE 1 DIABETES MELLITUS
     Dosage: 7 U, EACH EVENING
  8. INSULIN, ANIMAL [Suspect]
  9. PREDNISONE TAB [Concomitant]
     Dosage: 5 MG, DAILY (1/D)
     Dates: start: 20070101
  10. PREDNISONE TAB [Concomitant]
     Dosage: 4 MG, DAILY (1/D)
  11. HUMULIN N [Suspect]
     Dosage: UNK UNK, PRN
  12. HUMULIN R [Suspect]
     Dosage: 2 U, UNK
     Dates: start: 20080101

REACTIONS (20)
  - GASTRIC ULCER [None]
  - BLOOD GLUCOSE INCREASED [None]
  - RENAL IMPAIRMENT [None]
  - POLYMYALGIA RHEUMATICA [None]
  - HOSPITALISATION [None]
  - BLOOD GLUCOSE DECREASED [None]
  - VISUAL ACUITY REDUCED [None]
  - CATARACT [None]
  - VISION BLURRED [None]
  - RED BLOOD CELL SEDIMENTATION RATE INCREASED [None]
  - PALPITATIONS [None]
  - GASTRIC DISORDER [None]
  - TREMOR [None]
  - DIZZINESS [None]
  - PAIN [None]
  - FUNCTIONAL GASTROINTESTINAL DISORDER [None]
  - NEUROPATHY PERIPHERAL [None]
  - GAIT DISTURBANCE [None]
  - WEIGHT DECREASED [None]
  - DRUG INEFFECTIVE [None]
